FAERS Safety Report 11383596 (Version 3)
Quarter: 2015Q3

REPORT INFORMATION
  Report Type: Spontaneous
  Country: US (occurrence: US)
  Receive Date: 20150814
  Receipt Date: 20150918
  Transmission Date: 20151125
  Serious: No
  Sender: FDA-Public Use
  Company Number: US-PFIZER INC-2015272003

PATIENT
  Age: 12 Year
  Sex: Female
  Weight: 43 kg

DRUGS (4)
  1. ZOLOFT [Suspect]
     Active Substance: SERTRALINE HYDROCHLORIDE
     Dosage: 50 MG, DAILY
     Route: 048
     Dates: start: 20150725
  2. ZOLOFT [Suspect]
     Active Substance: SERTRALINE HYDROCHLORIDE
     Dosage: 25 MG, DAILY (1/2 TABLET DAILY)
     Route: 048
     Dates: start: 20150717, end: 20150724
  3. VALERIAN ROOT [Concomitant]
     Active Substance: VALERIAN
     Dosage: COUPLE OF DROPS IN WATER
     Dates: start: 20150710
  4. ZOLOFT [Suspect]
     Active Substance: SERTRALINE HYDROCHLORIDE
     Indication: PANIC ATTACK
     Dosage: 50 MG, DAILY
     Route: 048
     Dates: start: 20150710, end: 20150711

REACTIONS (5)
  - Epistaxis [Recovered/Resolved]
  - Sensation of foreign body [Not Recovered/Not Resolved]
  - Heart rate increased [Recovered/Resolved]
  - Insomnia [Recovered/Resolved]
  - Intentional product use issue [Recovered/Resolved]

NARRATIVE: CASE EVENT DATE: 20150711
